FAERS Safety Report 5100531-5 (Version None)
Quarter: 2006Q3

REPORT INFORMATION
  Report Type: 
  Country: None (occurrence: None)
  Receive Date: 20060909
  Receipt Date: 20060829
  Transmission Date: 20061208
  Serious: Yes (Hospitalization, Congenital Anomaly, Other)
  Sender: FDA-Public Use
  Company Number: FR-ABBOTT-06P-056-0342728-00

PATIENT
  Sex: Female
  Weight: 2.75 kg

DRUGS (11)
  1. NORVIR [Suspect]
     Indication: DRUG EXPOSURE DURING PREGNANCY
  2. NEVIRAPINE [Suspect]
     Indication: DRUG EXPOSURE DURING PREGNANCY
     Route: 064
  3. NEVIRAPINE [Suspect]
     Indication: HIV INFECTION
     Route: 050
     Dates: start: 20060615, end: 20060622
  4. NEVIRAPINE [Suspect]
  5. LAMIVUDINE + ZIDOVUDINE [Suspect]
     Indication: DRUG EXPOSURE DURING PREGNANCY
  6. LAMIVUDINE + ZIDOVUDINE [Suspect]
  7. ZIDOVUDINE [Suspect]
     Indication: DRUG EXPOSURE DURING PREGNANCY
  8. ZIDOVUDINE [Suspect]
  9. NELFINAVIR [Concomitant]
     Indication: HIV INFECTION
     Dates: start: 20060621
  10. ZIDOVUDINE W/LAMIVUDINE [Concomitant]
     Indication: HIV INFECTION
     Dates: start: 20060627
  11. ZIDOVUDINE [Concomitant]
     Indication: HIV INFECTION
     Route: 050
     Dates: start: 20060615, end: 20060622

REACTIONS (10)
  - ANAEMIA [None]
  - ASPHYXIA [None]
  - CONGENITAL TRACHEOMALACIA [None]
  - CONVULSION [None]
  - DYSKINESIA [None]
  - MALAISE [None]
  - MEDICATION ERROR [None]
  - NEUTROPENIA [None]
  - OVERDOSE [None]
  - RESPIRATORY DISTRESS [None]
